FAERS Safety Report 10072965 (Version 2)
Quarter: 2014Q2

REPORT INFORMATION
  Report Type: Report from Study
  Country: US (occurrence: US)
  Receive Date: 20140411
  Receipt Date: 20140516
  Transmission Date: 20141212
  Serious: Yes (Hospitalization, Other)
  Sender: FDA-Public Use
  Company Number: US-JNJFOC-20140403712

PATIENT
  Age: 87 Year
  Sex: Female

DRUGS (12)
  1. XARELTO [Suspect]
     Indication: CEREBROVASCULAR ACCIDENT PROPHYLAXIS
     Route: 048
     Dates: start: 20131231
  2. XARELTO [Suspect]
     Indication: ATRIAL FIBRILLATION
     Route: 048
     Dates: start: 20131231
  3. PROCRIT [Concomitant]
     Indication: RENAL FAILURE CHRONIC
     Route: 065
  4. METAMUCIL [Concomitant]
     Indication: CONSTIPATION
     Dosage: 1-2 TIMES DAILY
     Route: 048
  5. SULAR [Concomitant]
     Indication: HYPERTENSION
     Route: 048
     Dates: start: 201312
  6. SULAR [Concomitant]
     Indication: HYPERTENSION
     Route: 048
     Dates: start: 201312
  7. AVAPRO [Concomitant]
     Indication: HYPERTENSION
     Route: 048
  8. LEVOTHYROXINE [Concomitant]
     Indication: THYROID DISORDER
     Route: 048
  9. ALPRAZOLAM [Concomitant]
     Indication: SLEEP DISORDER
     Route: 048
  10. ALPRAZOLAM [Concomitant]
     Indication: ANXIETY
     Route: 048
  11. LUCENTIS [Concomitant]
     Indication: AGE-RELATED MACULAR DEGENERATION
     Route: 047
  12. XANAX [Concomitant]
     Route: 065

REACTIONS (19)
  - Renal failure [Unknown]
  - Blood urea increased [Unknown]
  - Urinary tract infection [Unknown]
  - Anaemia [Not Recovered/Not Resolved]
  - Fatigue [Unknown]
  - Lethargy [Not Recovered/Not Resolved]
  - Gait disturbance [Not Recovered/Not Resolved]
  - Dyspnoea [Not Recovered/Not Resolved]
  - Dysstasia [Not Recovered/Not Resolved]
  - Constipation [Unknown]
  - Asthenia [Not Recovered/Not Resolved]
  - Dehydration [Unknown]
  - Blood sodium decreased [Unknown]
  - Blood thyroid stimulating hormone decreased [Unknown]
  - Malaise [Not Recovered/Not Resolved]
  - Hypersomnia [Not Recovered/Not Resolved]
  - Nausea [Not Recovered/Not Resolved]
  - Vomiting [Not Recovered/Not Resolved]
  - Headache [Not Recovered/Not Resolved]
